FAERS Safety Report 17337069 (Version 1)
Quarter: 2020Q1

REPORT INFORMATION
  Report Type: Report from Study
  Country: NL (occurrence: NL)
  Receive Date: 20200129
  Receipt Date: 20200129
  Transmission Date: 20200409
  Serious: Yes (Hospitalization)
  Sender: FDA-Public Use
  Company Number: NVSC2020NL019599

PATIENT
  Age: 45 Year
  Sex: Female

DRUGS (2)
  1. ZOMETA [Suspect]
     Active Substance: ZOLEDRONIC ACID
     Dosage: 0.4 MG/ML (4MG / 100 ML, EVERY 26 WEEKS)
     Route: 042
     Dates: start: 20190313
  2. ZOMETA [Suspect]
     Active Substance: ZOLEDRONIC ACID
     Indication: BREAST CANCER
     Dosage: UNK
     Route: 042
     Dates: start: 20140130

REACTIONS (2)
  - Inappropriate schedule of product administration [Unknown]
  - Cat scratch disease [Unknown]

NARRATIVE: CASE EVENT DATE: 20200121
